FAERS Safety Report 7483054-8 (Version None)
Quarter: 2011Q2

REPORT INFORMATION
  Report Type: 
  Country: None (occurrence: None)
  Receive Date: 20110516
  Receipt Date: 20110511
  Transmission Date: 20111010
  Serious: Yes (Other)
  Sender: FDA-Public Use
  Company Number: JP-PFIZER INC-2011090225

PATIENT
  Age: 78 Year
  Sex: Female

DRUGS (13)
  1. OFLOXACIN [Concomitant]
     Dosage: 1 GTT, 4X/DAY
     Route: 047
     Dates: start: 20110404
  2. XALATAN [Concomitant]
     Dosage: 1 GTT, 1X/DAY
     Route: 047
     Dates: start: 20110404
  3. MAGMITT [Concomitant]
     Dosage: UNK
     Route: 048
     Dates: start: 20110411, end: 20110429
  4. VOLTAREN - SLOW RELEASE ^NOVARTIS^ [Concomitant]
     Dosage: UNK
     Route: 048
     Dates: start: 20110421, end: 20110429
  5. LYRICA [Suspect]
     Dosage: 75 MG, 2X/DAY
     Route: 048
     Dates: start: 20110426, end: 20110426
  6. CLINORIL [Concomitant]
     Dosage: 100 MG, 2X/DAY
     Route: 048
     Dates: start: 20110401, end: 20110420
  7. LYRICA [Suspect]
     Indication: PAIN
     Dosage: 75 MG, 1X/DAY
     Route: 048
     Dates: start: 20110425, end: 20110425
  8. MS HOT PACK [Concomitant]
     Dosage: UNK
     Route: 062
     Dates: start: 20110422, end: 20110422
  9. ZOLPIDEM [Concomitant]
     Indication: INSOMNIA
     Dosage: 5 MG, 1X/DAY
     Route: 048
     Dates: start: 20110401
  10. COLONEL [Concomitant]
     Dosage: UNK
     Route: 048
     Dates: start: 20110426, end: 20110429
  11. OLMESARTAN MEDOXOMIL [Concomitant]
     Indication: HYPERTENSION
     Dosage: 20 MG, 1X/DAY
     Route: 048
     Dates: start: 20110401
  12. LANSOPRAZOLE [Concomitant]
     Dosage: 15 MG, 1X/DAY
     Route: 048
     Dates: start: 20110401
  13. AZOPT [Concomitant]
     Dosage: 1 GTT, 3X/DAY
     Route: 047
     Dates: start: 20110404

REACTIONS (2)
  - C-REACTIVE PROTEIN INCREASED [None]
  - MUSCULAR WEAKNESS [None]
